FAERS Safety Report 6234172-3 (Version None)
Quarter: 2009Q2

REPORT INFORMATION
  Report Type: 
  Country: None (occurrence: None)
  Receive Date: 20090618
  Receipt Date: 20090609
  Transmission Date: 20091009
  Serious: Yes (Hospitalization)
  Sender: FDA-Public Use
  Company Number: FR-PFIZER INC-2009181724

PATIENT
  Age: 78 Year

DRUGS (1)
  1. TAHOR [Suspect]
     Dosage: 80 MG, UNK
     Dates: start: 20090101, end: 20090307

REACTIONS (3)
  - ACUTE CORONARY SYNDROME [None]
  - BLOOD CREATINE PHOSPHOKINASE INCREASED [None]
  - TRANSAMINASES INCREASED [None]
